FAERS Safety Report 7740259-6 (Version None)
Quarter: 2011Q3

REPORT INFORMATION
  Report Type: 
  Country: None (occurrence: None)
  Receive Date: 20110909
  Receipt Date: 20110906
  Transmission Date: 20111222
  Serious: Yes (Other)
  Sender: FDA-Public Use
  Company Number: CHPA2011US12001

PATIENT
  Age: 83 Year
  Sex: Male

DRUGS (4)
  1. MAALOX ANTACID QUICK DISSOLVE [Suspect]
     Dosage: 2 DF, QD
     Route: 048
     Dates: start: 20110905, end: 20110905
  2. LANTUS [Concomitant]
     Indication: TYPE 1 DIABETES MELLITUS
     Dosage: UNK, BID
  3. MAALOX ANTACID QUICK DISSOLVE [Suspect]
     Indication: DYSPEPSIA
     Dosage: 2 DF, QD
     Route: 048
     Dates: start: 20110830, end: 20110830
  4. INSULIN ASPART [Concomitant]
     Indication: TYPE 1 DIABETES MELLITUS
     Dosage: UNK, TID

REACTIONS (2)
  - CONCOMITANT DISEASE AGGRAVATED [None]
  - BLOOD GLUCOSE INCREASED [None]
